FAERS Safety Report 6340444-4 (Version None)
Quarter: 2009Q3

REPORT INFORMATION
  Report Type: 
  Country: None (occurrence: None)
  Receive Date: 20090904
  Receipt Date: 20090827
  Transmission Date: 20100115
  Serious: Yes (Hospitalization)
  Sender: FDA-Public Use
  Company Number: US-TEVA-207813USA

PATIENT
  Sex: Female

DRUGS (2)
  1. AMPHETAMINES [Suspect]
     Route: 048
     Dates: start: 20010101
  2. ADALIMUMAB [Suspect]

REACTIONS (2)
  - HEART RATE DECREASED [None]
  - HYPERSENSITIVITY [None]
